FAERS Safety Report 15192030 (Version 2)
Quarter: 2018Q4

REPORT INFORMATION
  Report Type: Spontaneous
  Country: BR (occurrence: BR)
  Receive Date: 20180724
  Receipt Date: 20181001
  Transmission Date: 20190204
  Serious: Yes (Life-Threatening, Other)
  Sender: FDA-Public Use
  Company Number: BR-BRISTOL-MYERS SQUIBB COMPANY-BMS-2018-066026

PATIENT
  Age: 8 Decade
  Sex: Male

DRUGS (2)
  1. ORENCIA [Suspect]
     Active Substance: ABATACEPT
     Indication: RHEUMATOID ARTHRITIS
     Dosage: UNK, Q2WK
     Route: 058
  2. LEFLUNOMIDE. [Concomitant]
     Active Substance: LEFLUNOMIDE
     Indication: PRODUCT USED FOR UNKNOWN INDICATION
     Dosage: UNK
     Route: 065

REACTIONS (3)
  - Weight decreased [Unknown]
  - Malignant neoplasm progression [Unknown]
  - Off label use [Unknown]
